FAERS Safety Report 21766187 (Version 1)
Quarter: 2022Q4

REPORT INFORMATION
  Report Type: Report from Study
  Country: IT (occurrence: IT)
  Receive Date: 20221222
  Receipt Date: 20221222
  Transmission Date: 20230112
  Serious: Yes (Other)
  Sender: FDA-Public Use
  Company Number: None

PATIENT
  Age: 17 Year
  Sex: Female
  Weight: 53 kg

DRUGS (6)
  1. METHOTREXATE (METHOTREXATE SODIUM) [Suspect]
     Active Substance: METHOTREXATE SODIUM
     Indication: Acute lymphocytic leukaemia recurrent
     Dosage: 154 MG/DAY IV ON 09/15, 1,389 MG/DAY ON 09/15 , METOTRESSATO TEVA
     Dates: start: 20220915, end: 20220915
  2. VINCRISTINE [Suspect]
     Active Substance: VINCRISTINE
     Indication: Acute lymphocytic leukaemia recurrent
     Dosage: 2 MG/DAY IV ON 15, 20, 29/09, 31/10, 07, 14, 21/11/22 , VINCRISTINA TEVA ITALY , DURATION : 67 DAYS
     Dates: start: 20220915, end: 20221121
  3. ONCASPAR [Suspect]
     Active Substance: PEGASPARGASE
     Indication: Acute lymphocytic leukaemia recurrent
     Dosage: 1,544 IU ON 09/19, 03, 10/31, 07, 14, 11/21/22 , DURATION : 21 DAYS
     Dates: start: 20221031, end: 20221121
  4. CYTARABINE [Suspect]
     Active Substance: CYTARABINE
     Indication: Acute lymphocytic leukaemia recurrent
     Dosage: 4630 MG/DAY FROM 9/28 TO 9/30/22 , DURATION : 2 DAYS
     Dates: start: 20220928, end: 20220930
  5. IDARUBICIN [Suspect]
     Active Substance: IDARUBICIN
     Indication: Acute lymphocytic leukaemia recurrent
     Dosage: 9 MG/DAY ON 10/31, 07, 14, 11/21/22 , DURATION : 21 DAYS
     Dates: start: 20221031, end: 20221121
  6. DECAPEPTYL [Concomitant]
     Indication: Product used for unknown indication
     Dosage: 1 FL I.M. ON 09/14, 10/06/22 , DURATION : 22 DAYS
     Dates: start: 20220914, end: 20221006

REACTIONS (8)
  - Hepatocellular injury [Recovering/Resolving]
  - Jaundice hepatocellular [Recovering/Resolving]
  - Pancytopenia [Not Recovered/Not Resolved]
  - Escherichia infection [Recovered/Resolved]
  - Photophobia [Recovering/Resolving]
  - Constipation [Recovering/Resolving]
  - Anaemia [Not Recovered/Not Resolved]
  - Pain in extremity [Recovering/Resolving]

NARRATIVE: CASE EVENT DATE: 20220920
